FAERS Safety Report 6434159-1 (Version None)
Quarter: 2009Q4

REPORT INFORMATION
  Report Type: 
  Country: None (occurrence: None)
  Receive Date: 20091110
  Receipt Date: 20090812
  Transmission Date: 20100525
  Serious: No
  Sender: FDA-Public Use
  Company Number: US-ASTRAZENECA-2009SE12518

PATIENT
  Sex: Female

DRUGS (3)
  1. PRILOSEC OTC [Suspect]
     Indication: REGURGITATION
     Dosage: 1 TABLET, 1 /DAY
     Route: 048
     Dates: start: 20090729
  2. DIAZEPAM [Interacting]
     Dosage: UNKNOWN
  3. PROZAC                             /00724401/ [Concomitant]
     Dosage: UNKNOWN

REACTIONS (3)
  - APHTHOUS STOMATITIS [None]
  - DYSPHONIA [None]
  - LABELLED DRUG-DRUG INTERACTION MEDICATION ERROR [None]
